FAERS Safety Report 20383372 (Version 3)
Quarter: 2022Q1

REPORT INFORMATION
  Report Type: Spontaneous
  Country: US (occurrence: US)
  Receive Date: 20220127
  Receipt Date: 20220309
  Transmission Date: 20220423
  Serious: Yes (Hospitalization)
  Sender: FDA-Public Use
  Company Number: US-GW PHARMA-202201USGW00173

PATIENT
  Age: 17 Year
  Sex: Male
  Weight: 52.608 kg

DRUGS (12)
  1. EPIDIOLEX [Suspect]
     Active Substance: CANNABIDIOL
     Indication: Partial seizures
     Dosage: 1400 MILLIGRAM, UNK
     Route: 048
     Dates: start: 201911, end: 20211220
  2. EPIDIOLEX [Suspect]
     Active Substance: CANNABIDIOL
     Indication: Epilepsy
     Dosage: 26.61 MG/KG/DAY, 700 MILLIGRAM, BID
     Route: 048
     Dates: start: 20211221
  3. EPIDIOLEX [Suspect]
     Active Substance: CANNABIDIOL
     Indication: Focal dyscognitive seizures
  4. EPIDIOLEX [Suspect]
     Active Substance: CANNABIDIOL
     Indication: Epilepsy
  5. ALBUTEROL [Concomitant]
     Active Substance: ALBUTEROL
     Indication: Dyspnoea
     Dosage: 1 DOSAGE FORM, PRN, (ONE VIAL VIA NEBULIZER EVERY 3-4 HOURS, QUANTITY: 75 ML, 3 REFILLS)
     Route: 065
     Dates: start: 20210416
  6. LIORESAL [Concomitant]
     Active Substance: BACLOFEN
     Indication: Product used for unknown indication
     Dosage: ONE AND HALF TABLETS THREE TIMES A DAY, 135 TABLETS, 11 REFILLS
     Route: 065
     Dates: start: 20210729
  7. CLARITIN [Concomitant]
     Active Substance: LORATADINE
     Indication: Product used for unknown indication
     Dosage: 10 MG, MIXED IN LIQUID BY MOUTH OR G-TUBE, 90 TABLETS, 3 REFILLS
     Dates: start: 20210810
  8. CLARITIN [Concomitant]
     Active Substance: LORATADINE
     Dosage: ANOTHER ROUTE
     Route: 048
     Dates: start: 20210810
  9. MYCOSTATIN [Concomitant]
     Active Substance: NYSTATIN
     Indication: Application site irritation
     Dosage: APPLY TO G-TUBE SITE, THREE TIMES A DAY, 30 G, 5 REFILLS
     Route: 065
     Dates: start: 20200529
  10. POLYETHYLENE GLYCOL 3350 [Concomitant]
     Active Substance: POLYETHYLENE GLYCOL 3350
     Indication: Constipation
     Dosage: MIX 1/2 CAPFUL IN WATER AND GIVE 1 TO 2 TIMES A DAY AS NEEDED, 3 QUANTITY
     Route: 065
     Dates: start: 20210224
  11. CARAFATE [Concomitant]
     Active Substance: SUCRALFATE
     Indication: Product used for unknown indication
     Dosage: 1 DOSAGE FORM, TID, 60 ML 3 REFILLS
     Route: 065
     Dates: start: 20160401
  12. TRICITRATES [Concomitant]
     Active Substance: CITRIC ACID MONOHYDRATE\POTASSIUM CITRATE\SODIUM CITRATE
     Indication: Product used for unknown indication
     Dosage: 12 MILLILITER, TID, 5 REFILLS
     Dates: start: 20211027

REACTIONS (7)
  - Obstructive airways disorder [Recovered/Resolved]
  - Increased bronchial secretion [Recovered/Resolved]
  - Metapneumovirus infection [Recovered/Resolved]
  - Hypoxia [Recovered/Resolved]
  - Sleep apnoea syndrome [Unknown]
  - Product use in unapproved indication [Unknown]
  - Prescribed overdose [Unknown]

NARRATIVE: CASE EVENT DATE: 20211204
